FAERS Safety Report 25842126 (Version 1)
Quarter: 2025Q3

REPORT INFORMATION
  Report Type: Spontaneous
  Country: JP (occurrence: JP)
  Receive Date: 20250924
  Receipt Date: 20250924
  Transmission Date: 20251020
  Serious: Yes (Death, Hospitalization)
  Sender: TAIHO ONCOLOGY INC
  Company Number: JP-TAIHOP-2025-008180

PATIENT
  Age: 56 Year
  Sex: Female

DRUGS (2)
  1. LONSURF [Suspect]
     Active Substance: TIPIRACIL HYDROCHLORIDE\TRIFLURIDINE
     Indication: Colorectal cancer metastatic
     Route: 048
  2. AVASTIN [Concomitant]
     Active Substance: BEVACIZUMAB
     Indication: Colorectal cancer
     Route: 042

REACTIONS (5)
  - Death [Fatal]
  - Inappropriate schedule of product administration [Unknown]
  - Extra dose administered [Unknown]
  - Haematotoxicity [Unknown]
  - Febrile neutropenia [Recovering/Resolving]
